FAERS Safety Report 7213138-0 (Version None)
Quarter: 2011Q1

REPORT INFORMATION
  Report Type: 
  Country: None (occurrence: None)
  Receive Date: 20110106
  Receipt Date: 20110104
  Transmission Date: 20110831
  Serious: Yes (Hospitalization, Other)
  Sender: FDA-Public Use
  Company Number: FR-BRISTOL-MYERS SQUIBB COMPANY-15355233

PATIENT
  Age: 42 Year
  Sex: Male

DRUGS (9)
  1. ZOPHREN [Concomitant]
  2. BLEOMYCIN SULFATE [Suspect]
     Indication: TESTICULAR NEOPLASM
     Dosage: 30 MG*3 ACCORDING TO CYCLE
     Route: 042
     Dates: start: 20091126, end: 20100326
  3. OXALIPLATIN [Suspect]
     Indication: TESTICULAR NEOPLASM
     Route: 042
     Dates: start: 20091221, end: 20100125
  4. PREVISCAN [Concomitant]
  5. NEXIUM [Concomitant]
  6. CISPLATIN [Suspect]
     Indication: TESTICULAR NEOPLASM
     Dosage: 40 MG X 5 ACCORDING TO CYCLE
     Route: 042
     Dates: start: 20091126, end: 20100326
  7. TAXOL [Suspect]
     Indication: TESTICULAR NEOPLASM
     Dosage: 350MG ACCORDING TO CYCLE
     Route: 042
     Dates: start: 20091221, end: 20100125
  8. ETOPOSIDE [Suspect]
     Indication: TESTICULAR NEOPLASM
     Dosage: 200 MG X 5 ACCORDING TO CYCLE
     Route: 042
     Dates: start: 20091126, end: 20100125
  9. PRIMPERAN TAB [Concomitant]

REACTIONS (4)
  - ANAEMIA [None]
  - THROMBOCYTOPENIA [None]
  - INTERSTITIAL LUNG DISEASE [None]
  - STAPHYLOCOCCAL SEPSIS [None]
